FAERS Safety Report 19713705 (Version 9)
Quarter: 2022Q2

REPORT INFORMATION
  Report Type: Report from Study
  Country: JP (occurrence: JP)
  Receive Date: 20210817
  Receipt Date: 20220602
  Transmission Date: 20220721
  Serious: Yes (Death, Life-Threatening, Hospitalization, Other)
  Sender: FDA-Public Use
  Company Number: JP-SAKK-2021SA263938AA

PATIENT
  Age: 71 Year
  Sex: Male
  Weight: 38.1 kg

DRUGS (18)
  1. ALEMTUZUMAB [Suspect]
     Active Substance: ALEMTUZUMAB
     Indication: T-cell prolymphocytic leukaemia
     Dosage: 30 MG, TIW
     Route: 041
     Dates: start: 20210804, end: 20210913
  2. ALEMTUZUMAB [Suspect]
     Active Substance: ALEMTUZUMAB
     Dosage: 3 MG, 1X
     Route: 041
     Dates: start: 20210802, end: 20210802
  3. ALEMTUZUMAB [Suspect]
     Active Substance: ALEMTUZUMAB
     Dosage: 10 MG, 1X
     Route: 041
     Dates: start: 20210803, end: 20210803
  4. ALEMTUZUMAB [Suspect]
     Active Substance: ALEMTUZUMAB
     Dosage: 30 MG, 1X
     Route: 041
     Dates: start: 20210917, end: 20210917
  5. CALONAL [Concomitant]
     Active Substance: ACETAMINOPHEN
     Indication: Cystitis haemorrhagic
     Dosage: 1000 MG, QD
     Route: 048
     Dates: start: 20210802, end: 20210917
  6. CALONAL [Concomitant]
     Active Substance: ACETAMINOPHEN
     Indication: Prophylaxis
     Dosage: 500 MG, TID
     Route: 048
     Dates: start: 20211015, end: 20211026
  7. POLARAMINE [Concomitant]
     Active Substance: DEXCHLORPHENIRAMINE MALEATE
     Indication: Prophylaxis
     Dosage: 2 MG, QD
     Route: 048
     Dates: start: 20210802, end: 20210917
  8. POLARAMINE [Concomitant]
     Active Substance: DEXCHLORPHENIRAMINE MALEATE
     Indication: Rash
  9. SOLU-CORTEF [Concomitant]
     Active Substance: HYDROCORTISONE SODIUM SUCCINATE
     Indication: Prophylaxis
     Dosage: 200 MG, QD
     Route: 042
     Dates: start: 20210802, end: 20210917
  10. SULFAMETHOXAZOLE\TRIMETHOPRIM [Concomitant]
     Active Substance: SULFAMETHOXAZOLE\TRIMETHOPRIM
     Indication: Infection prophylaxis
     Dosage: 1 TABLETS, BIW (TWICE/DAY)
     Route: 048
     Dates: start: 20210708, end: 20211115
  11. ACYCLOVIR [Concomitant]
     Active Substance: ACYCLOVIR
     Indication: Infection prophylaxis
     Dosage: 200 MG, QD
     Route: 048
     Dates: start: 20210713, end: 20211115
  12. NOXAFIL [Concomitant]
     Active Substance: POSACONAZOLE
     Indication: Infection prophylaxis
     Dosage: 300 MG, QD
     Route: 048
     Dates: start: 20210714, end: 20211115
  13. FEBUXOSTAT [Concomitant]
     Active Substance: FEBUXOSTAT
     Indication: Prophylaxis
     Dosage: 60 MG, QD
     Route: 048
     Dates: start: 20210706, end: 20210907
  14. LANSOPRAZOLE [Concomitant]
     Active Substance: LANSOPRAZOLE
     Indication: Prophylaxis against gastrointestinal ulcer
     Dosage: 15 MG, QD
     Route: 048
     Dates: start: 20210706, end: 20211120
  15. MIYA-BM [Concomitant]
     Active Substance: CLOSTRIDIUM BUTYRICUM SPORES STRAIN M-55
     Indication: Product used for unknown indication
     Dosage: 2 TABLETS, TID
     Route: 048
     Dates: start: 20211017
  16. AMLODIPINE BESYLATE [Concomitant]
     Active Substance: AMLODIPINE BESYLATE
     Indication: Product used for unknown indication
     Dosage: 2.5 MG, QD
     Route: 048
     Dates: start: 20211013, end: 20211103
  17. MAGNESIUM OXIDE [Concomitant]
     Active Substance: MAGNESIUM OXIDE
     Indication: Product used for unknown indication
     Dosage: 330 MG, TID
     Route: 048
     Dates: start: 20211014, end: 20211028
  18. POTASSIUM GLUCONATE [Concomitant]
     Active Substance: POTASSIUM GLUCONATE
     Indication: Product used for unknown indication
     Dosage: 8 MEQ, TID
     Route: 048
     Dates: start: 20211014, end: 20211025

REACTIONS (16)
  - Pneumonia [Fatal]
  - Haemophagocytic lymphohistiocytosis [Not Recovered/Not Resolved]
  - Cytomegalovirus viraemia [Recovering/Resolving]
  - Cystitis haemorrhagic [Recovering/Resolving]
  - Platelet count decreased [Recovering/Resolving]
  - Haematuria [Recovering/Resolving]
  - Full blood count decreased [Recovered/Resolved]
  - Full blood count decreased [Recovered/Resolved]
  - Urinary retention [Recovered/Resolved]
  - Hypokalaemia [Recovering/Resolving]
  - Rash [Recovered/Resolved]
  - Lymphocyte count decreased [Unknown]
  - Diarrhoea [Recovering/Resolving]
  - Hypertension [Recovering/Resolving]
  - Constipation [Recovered/Resolved]
  - Urinary tract infection [Recovering/Resolving]

NARRATIVE: CASE EVENT DATE: 20210806
